FAERS Safety Report 24850145 (Version 2)
Quarter: 2025Q1

REPORT INFORMATION
  Report Type: Spontaneous
  Country: GB (occurrence: GB)
  Receive Date: 20250116
  Receipt Date: 20250122
  Transmission Date: 20250408
  Serious: Yes (Other)
  Sender: PERRIGO
  Company Number: None

PATIENT
  Age: 65 Year
  Sex: Male
  Weight: 67 kg

DRUGS (2)
  1. IBUPROFEN [Suspect]
     Active Substance: IBUPROFEN
     Indication: Nerve compression
     Route: 065
     Dates: start: 20210805, end: 20250105
  2. IBUPROFEN [Suspect]
     Active Substance: IBUPROFEN
     Indication: Pelvic fracture

REACTIONS (1)
  - Contusion [Recovering/Resolving]

NARRATIVE: CASE EVENT DATE: 20220106
